FAERS Safety Report 9118313 (Version 1)
Quarter: 2013Q1

REPORT INFORMATION
  Report Type: Spontaneous
  Country: US (occurrence: None)
  Receive Date: 20130221
  Receipt Date: 20130221
  Transmission Date: 20140127
  Serious: Yes (Hospitalization)
  Sender: FDA-Public Use
  Company Number: None

PATIENT
  Age: 49 Year
  Sex: Male
  Weight: 141.1 kg

DRUGS (1)
  1. LISINOPRIL 10MG LUPIN [Suspect]
     Indication: HYPERTENSION
     Route: 048

REACTIONS (3)
  - Swollen tongue [None]
  - Angioedema [None]
  - Drug hypersensitivity [None]
